FAERS Safety Report 4434466-8 (Version None)
Quarter: 2004Q3

REPORT INFORMATION
  Report Type: 
  Country: None (occurrence: None)
  Receive Date: 20040726
  Receipt Date: 20040315
  Transmission Date: 20050211
  Serious: No
  Sender: FDA-Public Use
  Company Number: USA040259742

PATIENT
  Age: 72 Year
  Sex: Female
  Weight: 52 kg

DRUGS (9)
  1. FORTEO [Suspect]
     Indication: OSTEOPOROSIS
     Dosage: 20 UG/ 1 DAY
     Dates: start: 20040212
  2. MEDENT [Concomitant]
  3. CALCIUM [Concomitant]
  4. ACTONEL [Concomitant]
  5. ACCUPRIL [Concomitant]
  6. ZOCOR [Concomitant]
  7. CLARINEX [Concomitant]
  8. NASONEX [Concomitant]
  9. HONEY [Concomitant]

REACTIONS (4)
  - APATHY [None]
  - FEELING ABNORMAL [None]
  - NAUSEA [None]
  - STOMACH DISCOMFORT [None]
